FAERS Safety Report 5520688-1 (Version None)
Quarter: 2007Q4

REPORT INFORMATION
  Report Type: 
  Country: None (occurrence: None)
  Receive Date: 20071115
  Receipt Date: 20071115
  Transmission Date: 20080405
  Serious: Yes (Hospitalization)
  Sender: FDA-Public Use
  Company Number: None

PATIENT
  Sex: Female
  Weight: 57.7 kg

DRUGS (2)
  1. CYCLOPHOSPHAMIDE [Suspect]
     Dosage: 960 MG
  2. DOXORUBICIN HYDROCHLORIDE [Suspect]
     Dosage: 50 MG

REACTIONS (3)
  - LEUKOPENIA [None]
  - LYMPHOPENIA [None]
  - NEUTROPENIA [None]
